FAERS Safety Report 9171073 (Version 1)
Quarter: 2013Q1

REPORT INFORMATION
  Report Type: Spontaneous
  Country: GB (occurrence: None)
  Receive Date: 20130315
  Receipt Date: 20130315
  Transmission Date: 20140127
  Serious: Yes (Death)
  Sender: FDA-Public Use
  Company Number: GER/UKI/13/0028544

PATIENT
  Age: 71 Year
  Sex: Female

DRUGS (1)
  1. RISPERIDONE [Suspect]
     Indication: PSYCHIATRIC SYMPTOM
     Dates: start: 2005

REACTIONS (1)
  - Parkinsonism [None]
